FAERS Safety Report 6838658-X (Version None)
Quarter: 2010Q3

REPORT INFORMATION
  Report Type: 
  Country: None (occurrence: None)
  Receive Date: 20100713
  Receipt Date: 20070606
  Transmission Date: 20110219
  Serious: No
  Sender: FDA-Public Use
  Company Number: US-PFIZER INC-2007046770

PATIENT
  Sex: Female
  Weight: 65.909 kg

DRUGS (6)
  1. CHANTIX [Suspect]
     Indication: SMOKING CESSATION THERAPY
     Dates: start: 20061013
  2. ADVIL LIQUI-GELS [Concomitant]
  3. BENADRYL [Concomitant]
  4. TYLENOL PM [Suspect]
  5. VITAMINS [Concomitant]
  6. CALCIUM [Concomitant]

REACTIONS (1)
  - FATIGUE [None]
